FAERS Safety Report 6015623-6 (Version None)
Quarter: 2008Q4

REPORT INFORMATION
  Report Type: 
  Country: None (occurrence: None)
  Receive Date: 20081216
  Receipt Date: 20031013
  Transmission Date: 20090506
  Serious: Yes (Hospitalization)
  Sender: FDA-Public Use
  Company Number: HQWYE065613AUG03

PATIENT
  Age: 1 Day
  Sex: Female
  Weight: 2.44 kg

DRUGS (3)
  1. EFFEXOR XR [Suspect]
     Dosage: 75 MG 3X PER 1 DAY, ORAL ; 150 MG 3X PER 1 DAY, ORAL
     Route: 064
     Dates: start: 20020201, end: 20020220
  2. EFFEXOR XR [Suspect]
     Dosage: 75 MG 3X PER 1 DAY, ORAL ; 150 MG 3X PER 1 DAY, ORAL
     Route: 064
     Dates: start: 20020221, end: 20021010
  3. WELLBUTRIN [Suspect]
     Dosage: 150 MG 2X PER 1 DAY, TRANSPLACENTAL
     Route: 064
     Dates: start: 20020221, end: 20021010

REACTIONS (3)
  - APGAR SCORE LOW [None]
  - FEEDING DISORDER NEONATAL [None]
  - INFANTILE APNOEIC ATTACK [None]
